FAERS Safety Report 7529718-9 (Version None)
Quarter: 2011Q2

REPORT INFORMATION
  Report Type: 
  Country: None (occurrence: None)
  Receive Date: 20110607
  Receipt Date: 20110601
  Transmission Date: 20111010
  Serious: Yes (Life-Threatening, Hospitalization)
  Sender: FDA-Public Use
  Company Number: B0723310A

PATIENT
  Sex: Female

DRUGS (6)
  1. PIPERACILLIN AND TAZOBACTAM [Suspect]
     Indication: INFLAMMATION
     Dosage: 4G TWICE PER DAY
     Route: 042
     Dates: start: 20110504, end: 20110506
  2. CIPROFLOXACIN [Suspect]
     Indication: INFLAMMATION
     Dosage: 400MG TWICE PER DAY
     Route: 042
     Dates: start: 20110504, end: 20110506
  3. LASIX [Suspect]
     Indication: PRODUCT USED FOR UNKNOWN INDICATION
     Dosage: 125MG PER DAY
     Route: 042
     Dates: start: 20110502, end: 20110506
  4. ZANTAC [Suspect]
     Indication: PRODUCT USED FOR UNKNOWN INDICATION
     Dosage: 50MG TWICE PER DAY
     Route: 042
     Dates: start: 20110502, end: 20110502
  5. PANTOPRAZOLE [Suspect]
     Indication: PRODUCT USED FOR UNKNOWN INDICATION
     Dosage: 40MG PER DAY
     Route: 042
     Dates: start: 20110503, end: 20110506
  6. AUGMENTIN '125' [Suspect]
     Indication: LUNG DISORDER
     Dosage: .5G THREE TIMES PER DAY
     Route: 042
     Dates: start: 20110427, end: 20110503

REACTIONS (2)
  - CHOLELITHIASIS [None]
  - JAUNDICE CHOLESTATIC [None]
